FAERS Safety Report 5288095-7 (Version None)
Quarter: 2007Q1

REPORT INFORMATION
  Report Type: 
  Country: None (occurrence: None)
  Receive Date: 20070116
  Receipt Date: 20061019
  Transmission Date: 20070707
  Serious: No
  Sender: FDA-Public Use
  Company Number: 2006SP003739

PATIENT
  Age: 60 Year
  Weight: 58.9676 kg

DRUGS (4)
  1. LUNESTA [Suspect]
     Indication: INSOMNIA
     Dosage: 2 MG; 1X; ORAL
     Route: 048
     Dates: start: 20061018, end: 20061018
  2. PREMARIN [Concomitant]
  3. PHENYTOIN SODIUM [Concomitant]
  4. ZANTAC [Concomitant]

REACTIONS (2)
  - ABDOMINAL PAIN UPPER [None]
  - POOR QUALITY SLEEP [None]
